FAERS Safety Report 8841765 (Version 1)
Quarter: 2012Q4

REPORT INFORMATION
  Report Type: 
  Country: US (occurrence: US)
  Receive Date: 20121016
  Receipt Date: 20121016
  Transmission Date: 20130627
  Serious: Yes (Hospitalization)
  Sender: FDA-Public Use
  Company Number: US-JNJFOC-20121005920

PATIENT
  Sex: Male
  Weight: 97.07 kg

DRUGS (13)
  1. ZYTIGA [Suspect]
     Indication: PROSTATE CANCER
     Route: 048
     Dates: start: 20120824
  2. PREDNISONE [Concomitant]
     Indication: PROSTATE CANCER
     Route: 048
     Dates: start: 2012
  3. LIPITOR [Concomitant]
     Indication: BLOOD CHOLESTEROL
     Route: 048
     Dates: start: 2012
  4. OSCAL NOS [Concomitant]
     Route: 065
  5. CENTRUM SILVER [Concomitant]
     Route: 065
  6. KEPPRA [Concomitant]
     Indication: BRAIN NEOPLASM
     Route: 065
  7. DEXAMETHASONE [Concomitant]
     Indication: BRAIN NEOPLASM
     Route: 065
  8. NEXIUM [Concomitant]
     Indication: BRAIN NEOPLASM
     Route: 065
  9. COLACE [Concomitant]
     Indication: BRAIN NEOPLASM
     Route: 065
  10. PERCOCET [Concomitant]
     Indication: BACK PAIN
     Route: 065
  11. WARFARIN [Concomitant]
     Indication: INTERNATIONAL NORMALISED RATIO INCREASED
     Route: 065
  12. WARFARIN [Concomitant]
     Indication: PULMONARY THROMBOSIS
     Route: 065
  13. BACTRIM DS [Concomitant]
     Indication: CYSTITIS
     Route: 065

REACTIONS (8)
  - Brain neoplasm [Unknown]
  - Lethargy [Not Recovered/Not Resolved]
  - Back pain [Not Recovered/Not Resolved]
  - Syncope [Recovered/Resolved]
  - Pulmonary thrombosis [Unknown]
  - International normalised ratio increased [Recovered/Resolved]
  - Cystitis [Recovered/Resolved]
  - Fatigue [Not Recovered/Not Resolved]
